FAERS Safety Report 5284742-4 (Version None)
Quarter: 2007Q2

REPORT INFORMATION
  Report Type: 
  Country: None (occurrence: None)
  Receive Date: 20070403
  Receipt Date: 20070329
  Transmission Date: 20071010
  Serious: Yes (Death, Hospitalization)
  Sender: FDA-Public Use
  Company Number: DE-AVENTIS-200710242DE

PATIENT
  Age: 56 Year
  Sex: Female
  Weight: 80 kg

DRUGS (12)
  1. ARAVA [Suspect]
     Route: 048
     Dates: start: 20060919, end: 20060101
  2. ARAVA [Suspect]
     Route: 048
     Dates: start: 20061101, end: 20060101
  3. ARAVA [Suspect]
     Route: 048
     Dates: start: 20060919, end: 20060101
  4. ARAVA [Suspect]
     Route: 048
     Dates: start: 20061101, end: 20060101
  5. QUANTALAN [Concomitant]
     Dosage: DOSE: NOT REPORTED
  6. QUENSYL [Concomitant]
     Indication: ARTHRITIS
     Route: 048
  7. METHOTREXAT                        /00113801/ [Concomitant]
     Indication: ARTHRITIS
     Dosage: DOSE: NOT REPORTED
  8. CORTICOSTEROIDS [Concomitant]
     Indication: ARTHRITIS
     Dosage: DOSE: NOT REPORTED
  9. PREDNISON [Concomitant]
     Indication: ARTHRITIS
     Dosage: DOSE: NOT REPORTED
     Route: 048
     Dates: end: 20060101
  10. PREDNISON [Concomitant]
     Route: 048
     Dates: start: 20060101
  11. ALENDRON [Concomitant]
     Indication: OSTEOPOROSIS
     Route: 048
     Dates: start: 20050418
  12. DEKRISTOL [Concomitant]
     Indication: OSTEOPOROSIS

REACTIONS (10)
  - ASTHENIA [None]
  - DEATH [None]
  - DIARRHOEA [None]
  - GENERAL PHYSICAL HEALTH DETERIORATION [None]
  - LEUKOPENIA [None]
  - NASAL CONGESTION [None]
  - OCULAR HYPERAEMIA [None]
  - PANCYTOPENIA [None]
  - THROMBOCYTOPENIA [None]
  - WEIGHT DECREASED [None]
